FAERS Safety Report 21192804 (Version 1)
Quarter: 2022Q3

REPORT INFORMATION
  Report Type: Spontaneous
  Country: KR (occurrence: KR)
  Receive Date: 20220810
  Receipt Date: 20220810
  Transmission Date: 20221027
  Serious: Yes (Other)
  Sender: FDA-Public Use
  Company Number: KR-SUN PHARMACEUTICAL INDUSTRIES LTD-2022RR-347818

PATIENT
  Age: 61 Year
  Sex: Male

DRUGS (2)
  1. GEMCITABINE [Suspect]
     Active Substance: GEMCITABINE
     Indication: Hereditary non-polyposis colorectal cancer syndrome
     Dosage: 1250 MILLIGRAM/SQ. METER
     Route: 065
  2. CISPLATIN [Suspect]
     Active Substance: CISPLATIN
     Indication: Hereditary non-polyposis colorectal cancer syndrome
     Dosage: 70 MILLIGRAM/SQ. METER
     Route: 065

REACTIONS (1)
  - Disease progression [Unknown]
